FAERS Safety Report 20828478 (Version 1)
Quarter: 2022Q2

REPORT INFORMATION
  Report Type: Spontaneous
  Country: US (occurrence: US)
  Receive Date: 20220513
  Receipt Date: 20220513
  Transmission Date: 20220721
  Serious: No
  Sender: FDA-Public Use
  Company Number: US-SA-SAC20220510000689

PATIENT
  Age: 64 Year
  Sex: Female

DRUGS (2)
  1. DUPIXENT [Suspect]
     Active Substance: DUPILUMAB
     Indication: Asthma
     Dosage: 300 MG, QOW
     Route: 058
     Dates: start: 202107
  2. FASENRA [Suspect]
     Active Substance: BENRALIZUMAB
     Dosage: FASENRA DOSING: INJECT 1 PEN UNDER THE SKIN AT WEEK 0, 4 AND 8, FRQ INJECT 1 PEN EVERY 8 WEEKS
     Route: 058

REACTIONS (1)
  - Product use issue [Unknown]
